FAERS Safety Report 5060006-9 (Version None)
Quarter: 2006Q2

REPORT INFORMATION
  Report Type: 
  Country: None (occurrence: None)
  Receive Date: 20060630
  Receipt Date: 20060202
  Transmission Date: 20061013
  Serious: Yes (Other)
  Sender: FDA-Public Use
  Company Number: US200602000661

PATIENT
  Age: 32 Year
  Sex: Male
  Weight: 120.2 kg

DRUGS (6)
  1. HUMALOG PEN [Suspect]
     Indication: DIABETES MELLITUS
     Dosage: 35 U
  2. HUMALOG MIX 75/25 [Suspect]
     Dates: start: 20060101
  3. HUMALOG MIX 75/25 [Suspect]
     Indication: DIABETES MELLITUS
  4. HUMALOG MIX 25L / 75NPL PEN (HUMALOG MIX 25L / 75NPL PEN) PEN,DISPOSAB [Concomitant]
  5. AVANDIA /UNK/ (ROSIGLITAZONE MALEATE) [Concomitant]
  6. METFORMIN [Concomitant]

REACTIONS (12)
  - BLOOD GLUCOSE DECREASED [None]
  - BLOOD GLUCOSE INCREASED [None]
  - DEPRESSED LEVEL OF CONSCIOUSNESS [None]
  - DYSPNOEA [None]
  - FALL [None]
  - FATIGUE [None]
  - HYPERHIDROSIS [None]
  - LOSS OF CONSCIOUSNESS [None]
  - MEDICATION ERROR [None]
  - NERVOUSNESS [None]
  - SOMNOLENCE [None]
  - TREMOR [None]
